FAERS Safety Report 13672034 (Version 1)
Quarter: 2017Q2

REPORT INFORMATION
  Report Type: Spontaneous
  Country: GB (occurrence: GB)
  Receive Date: 20170621
  Receipt Date: 20170621
  Transmission Date: 20170830
  Serious: Yes (Hospitalization)
  Sender: FDA-Public Use
  Company Number: GB-TEVA-777224ACC

PATIENT
  Age: 64 Year

DRUGS (27)
  1. METFORMIN [Suspect]
     Active Substance: METFORMIN HYDROCHLORIDE
     Dosage: 2 GRAM DAILY;
     Route: 048
  2. SWERTIA CHIRATA [Suspect]
     Active Substance: HERBALS
  3. STRYCHNOS NUX-VOMICA [Suspect]
     Active Substance: HERBALS\STRYCHNOS NUX-VOMICA SEED
  4. TERMINALIA CHEBULA [Suspect]
     Active Substance: HERBALS
  5. AMOXICILLIN. [Suspect]
     Active Substance: AMOXICILLIN
     Dosage: 2 GRAM DAILY;
     Route: 048
  6. HYDROCHLOROTHIAZIDE. [Suspect]
     Active Substance: HYDROCHLOROTHIAZIDE
     Dosage: 1 DOSAGE FORMS DAILY;
     Route: 048
  7. AZADIRACHTA INDICA [Suspect]
     Active Substance: HERBALS
  8. CURCUMA ZEDOARIA [Suspect]
     Active Substance: HERBALS
  9. CO-TENIDONE TABLETS BP 100/25 MG [Suspect]
     Active Substance: ATENOLOL\CHLORTHALIDONE
     Dosage: 1 DOSAGE FORMS DAILY;
     Route: 048
  10. KALMS [Suspect]
     Active Substance: HERBALS
     Dosage: 6 DOSAGE FORMS DAILY;
     Route: 048
  11. NYTOL [Suspect]
     Active Substance: DIPHENHYDRAMINE HYDROCHLORIDE
     Dosage: 25 MILLIGRAM DAILY;
     Route: 048
  12. TRIBULUS TERRESTRIS [Suspect]
     Active Substance: HERBALS\TRIBULUS TERRESTRIS
  13. AEGLE MARMELOS FRUIT [Suspect]
     Active Substance: HERBALS
  14. TRIGONELLA FOENUM-GRAECUM [Suspect]
     Active Substance: FENUGREEK LEAF\HERBALS
  15. PICRORHIZA KURROA [Suspect]
     Active Substance: HERBALS
  16. SYZYGIUM CUMINI [Suspect]
     Active Substance: HERBALS
  17. OLMESARTAN MEDOXOMIL. [Suspect]
     Active Substance: OLMESARTAN MEDOXOMIL
     Dosage: 1 DOSAGE FORMS DAILY;
     Route: 048
  18. TINOSPORA CORDIFOLIA [Suspect]
     Active Substance: HERBALS
  19. ADHATODA VASICA [Suspect]
     Active Substance: HERBALS
  20. EMBLICA OFFICINALIS [Suspect]
     Active Substance: HERBALS
  21. PANTOPRAZOLE [Suspect]
     Active Substance: PANTOPRAZOLE
     Dosage: 40 MILLIGRAM DAILY;
     Route: 048
  22. CLARITHROMYCIN. [Suspect]
     Active Substance: CLARITHROMYCIN
     Dosage: 1000 MILLIGRAM DAILY;
     Route: 048
  23. GYMNEMA SYLVESTRE [Suspect]
     Active Substance: HERBALS
  24. SALACIA CHINENSIS [Suspect]
     Active Substance: HERBALS
  25. WITHANIA SOMNIFERA [Suspect]
     Active Substance: HERBALS
  26. TURMERIC [Suspect]
     Active Substance: HERBALS\TURMERIC
  27. TERMINALIA BELERICA [Suspect]
     Active Substance: HERBALS

REACTIONS (1)
  - Hyponatraemia [Recovered/Resolved]
